FAERS Safety Report 24119636 (Version 1)
Quarter: 2024Q3

REPORT INFORMATION
  Report Type: Spontaneous
  Country: US (occurrence: US)
  Receive Date: 20240722
  Receipt Date: 20240722
  Transmission Date: 20241017
  Serious: Yes (Hospitalization, Other)
  Sender: BRISTOL MYERS SQUIBB
  Company Number: US-BRISTOL-MYERS SQUIBB COMPANY-2024-112584

PATIENT
  Age: 77 Year
  Sex: Female

DRUGS (2)
  1. POMALYST [Suspect]
     Active Substance: POMALIDOMIDE
     Indication: Plasma cell myeloma
     Dosage: ON EMPTY STOMACH
     Route: 048
     Dates: start: 202406
  2. POMALYST [Suspect]
     Active Substance: POMALIDOMIDE
     Indication: Breast cancer female

REACTIONS (2)
  - Pneumonia [Recovering/Resolving]
  - Off label use [Unknown]
